FAERS Safety Report 7810689 (Version 4)
Quarter: 2012Q4

REPORT INFORMATION
  Report Type: 
  Country: US (occurrence: US)
  Receive Date: 20110214
  Receipt Date: 20121115
  Transmission Date: 20130627
  Serious: Yes (Other)
  Sender: FDA-Public Use
  Company Number: US-ASTRAZENECA-2011SE06373

PATIENT
  Age: 58 Year
  Sex: Male

DRUGS (2)
  1. NEXIUM [Suspect]
     Route: 048
  2. CRESTOR [Suspect]
     Indication: BLOOD CHOLESTEROL ABNORMAL
     Route: 048

REACTIONS (4)
  - Peripheral artery thrombosis [Recovered/Resolved]
  - Peripheral arterial occlusive disease [Unknown]
  - Gait disturbance [Recovered/Resolved]
  - Exercise tolerance decreased [Unknown]
